FAERS Safety Report 14956617 (Version 2)
Quarter: 2019Q2

REPORT INFORMATION
  Report Type: Spontaneous
  Country: US (occurrence: US)
  Receive Date: 20180531
  Receipt Date: 20190524
  Transmission Date: 20190711
  Serious: No
  Sender: FDA-Public Use
  Company Number: US-NOVEN PHARMACEUTICALS, INC.-US2017000812

PATIENT

DRUGS (6)
  1. DAYTRANA [Suspect]
     Active Substance: METHYLPHENIDATE
     Dosage: 15 MG, UNK
     Route: 062
  2. DAYTRANA [Suspect]
     Active Substance: METHYLPHENIDATE
     Indication: ATTENTION DEFICIT/HYPERACTIVITY DISORDER
     Dosage: 10 MG, UNK
     Route: 062
  3. DAYTRANA [Suspect]
     Active Substance: METHYLPHENIDATE
     Dosage: APPLIED 20 MG +30 MG PATCHES TOGETHER TO MAKE UP FOR A DOSE OF 50 MG, UNKNOWN
     Route: 062
  4. DAYTRANA [Suspect]
     Active Substance: METHYLPHENIDATE
     Dosage: 30 MG, UNK
     Route: 062
  5. DAYTRANA [Suspect]
     Active Substance: METHYLPHENIDATE
     Dosage: APPLYING TWO PATCHES OF 30 MG IN THE MORNING TO MAKE UP DOSAGE OF 60 MG, MORNING
     Route: 062
  6. DAYTRANA [Suspect]
     Active Substance: METHYLPHENIDATE
     Dosage: 20 MG, UNK
     Route: 062

REACTIONS (6)
  - Product adhesion issue [Not Recovered/Not Resolved]
  - Wrong technique in product usage process [Not Recovered/Not Resolved]
  - No adverse event [Unknown]
  - Product quality issue [Not Recovered/Not Resolved]
  - Prescribed overdose [Not Recovered/Not Resolved]
  - Off label use [Not Recovered/Not Resolved]
